FAERS Safety Report 7597003-5 (Version None)
Quarter: 2011Q3

REPORT INFORMATION
  Report Type: 
  Country: None (occurrence: None)
  Receive Date: 20110708
  Receipt Date: 20110627
  Transmission Date: 20111222
  Serious: Yes (Death)
  Sender: FDA-Public Use
  Company Number: IN-SANOFI-AVENTIS-2011SA041234

PATIENT

DRUGS (1)
  1. ZOLPIDEM TARTRATE [Suspect]
     Route: 064

REACTIONS (3)
  - HYDROCEPHALUS [None]
  - MENINGOMYELOCELE [None]
  - NEURAL TUBE DEFECT [None]
